FAERS Safety Report 10885882 (Version 1)
Quarter: 2015Q1

REPORT INFORMATION
  Report Type: Spontaneous
  Country: SE (occurrence: SE)
  Receive Date: 20150304
  Receipt Date: 20150304
  Transmission Date: 20150721
  Serious: Yes (Other)
  Sender: FDA-Public Use
  Company Number: SE-JNJFOC-20150301157

PATIENT
  Age: 62 Year
  Sex: Female

DRUGS (9)
  1. REMICADE [Suspect]
     Active Substance: INFLIXIMAB
     Indication: PSORIATIC ARTHROPATHY
     Route: 042
  2. SALAZOPYRIN [Concomitant]
     Active Substance: SULFASALAZINE
     Route: 065
  3. REMICADE [Suspect]
     Active Substance: INFLIXIMAB
     Indication: PSORIATIC ARTHROPATHY
     Route: 042
     Dates: start: 20150202, end: 20150202
  4. TROMBYL [Concomitant]
     Active Substance: ASPIRIN
     Route: 065
  5. AMLODIPINE [Concomitant]
     Active Substance: AMLODIPINE BESYLATE
     Route: 065
  6. LEVAXIN [Concomitant]
     Active Substance: LEVOTHYROXINE SODIUM
     Route: 065
  7. NITROLINGUAL [Concomitant]
     Active Substance: NITROGLYCERIN
     Route: 065
  8. STESOLID [Concomitant]
     Active Substance: DIAZEPAM
     Route: 065
  9. ORUDIS [Concomitant]
     Active Substance: KETOPROFEN
     Route: 065

REACTIONS (2)
  - Skin reaction [Recovering/Resolving]
  - Infusion related reaction [Recovering/Resolving]

NARRATIVE: CASE EVENT DATE: 20150202
